FAERS Safety Report 7828493-8 (Version None)
Quarter: 2011Q4

REPORT INFORMATION
  Report Type: 
  Country: None (occurrence: None)
  Receive Date: 20111020
  Receipt Date: 20111012
  Transmission Date: 20120403
  Serious: Yes (Hospitalization, Other)
  Sender: FDA-Public Use
  Company Number: US-ABBOTT-11P-163-0702561-00

PATIENT
  Sex: Female
  Weight: 85.806 kg

DRUGS (17)
  1. HUMIRA [Suspect]
     Indication: PSORIATIC ARTHROPATHY
     Dates: start: 20080101, end: 20110621
  2. FENTANYL [Concomitant]
     Indication: PAIN
     Dosage: PATCH
  3. HYDROCHLOROTHIAZIDE [Concomitant]
     Indication: HYPERTENSION
  4. PREMARIN [Concomitant]
     Indication: HORMONE REPLACEMENT THERAPY
  5. CLOBETASOL PROPIONATE [Concomitant]
     Indication: PSORIASIS
  6. LEVOTHYROXINE SODIUM [Concomitant]
     Indication: HYPOTHYROIDISM
  7. VITAMIN D [Concomitant]
     Indication: VITAMIN SUPPLEMENTATION
  8. FLEXERIL [Concomitant]
     Indication: FIBROMYALGIA
  9. OMEPRAZOLE [Concomitant]
     Indication: DYSPEPSIA
  10. CLONIDINE [Concomitant]
     Indication: HYPERTENSION
  11. MECLIZINE [Concomitant]
     Indication: VERTIGO
  12. NORCO [Concomitant]
     Indication: PAIN
  13. POTASSIUM [Concomitant]
     Indication: MINERAL SUPPLEMENTATION
  14. TEMAZEPAM [Concomitant]
     Indication: INSOMNIA
  15. HUMIRA [Suspect]
     Indication: PSORIASIS
  16. LYRICA [Concomitant]
     Indication: FIBROMYALGIA
  17. XANAX [Concomitant]
     Indication: ANXIETY

REACTIONS (15)
  - ANKLE FRACTURE [None]
  - INFLUENZA [None]
  - FALL [None]
  - FATIGUE [None]
  - WOUND [None]
  - IMPAIRED HEALING [None]
  - BLOOD GROWTH HORMONE DECREASED [None]
  - JOINT SWELLING [None]
  - RASH PAPULAR [None]
  - BRAIN NEOPLASM [None]
  - VITAMIN D DECREASED [None]
  - VERTIGO [None]
  - THYROID FUNCTION TEST ABNORMAL [None]
  - OSTEOPOROSIS [None]
  - BENIGN EAR NEOPLASM [None]
